FAERS Safety Report 21378439 (Version 1)
Quarter: 2022Q3

REPORT INFORMATION
  Report Type: Spontaneous
  Country: DE (occurrence: DE)
  Receive Date: 20220927
  Receipt Date: 20220927
  Transmission Date: 20221026
  Serious: Yes (Hospitalization)
  Sender: FDA-Public Use
  Company Number: DE-ADRED-06741-01

PATIENT
  Age: 85 Year
  Sex: Female
  Weight: 55 kg

DRUGS (13)
  1. CITALOPRAM [Suspect]
     Active Substance: CITALOPRAM HYDROBROMIDE
     Indication: Product used for unknown indication
     Dosage: 20 MG, 0.5-0-0-0, TABLETTEN
     Route: 048
  2. HYDROCHLOROTHIAZIDE [Suspect]
     Active Substance: HYDROCHLOROTHIAZIDE
     Indication: Product used for unknown indication
     Dosage: 25 MG, 1-0-1-0, TABLETTEN
     Route: 048
  3. METOPROLOL [Suspect]
     Active Substance: METOPROLOL
     Indication: Product used for unknown indication
     Dosage: 95 MG, 1-0-0-0, TABLETTEN
     Route: 048
  4. CINNARIZINE\DIMENHYDRINATE [Suspect]
     Active Substance: CINNARIZINE\DIMENHYDRINATE
     Indication: Product used for unknown indication
     Dosage: 20|40 MG, 1-1-1-1, TABLETTEN
     Route: 048
  5. TORSEMIDE [Suspect]
     Active Substance: TORSEMIDE
     Indication: Product used for unknown indication
     Dosage: 5 MG, 0-1-0-1, TABLETTEN
     Route: 048
  6. TROSPIUM [Suspect]
     Active Substance: TROSPIUM
     Indication: Product used for unknown indication
     Dosage: 15 MG, 1-0-0-0, TABLETTEN
     Route: 048
  7. CHOLECALCIFEROL [Concomitant]
     Active Substance: CHOLECALCIFEROL
     Indication: Product used for unknown indication
     Dosage: 20000 IE, NACH SCHEMA, TABLETTEN (20000 IU, ACCORDING TO THE SCHEME, TABLETS)
     Route: 048
  8. Cyanocobalamin (Vitamin B12) [Concomitant]
     Indication: Product used for unknown indication
     Dosage: NACH SCHEMA (ACCORDING TO SCHEME)
     Route: 048
  9. APIXABAN [Concomitant]
     Active Substance: APIXABAN
     Indication: Product used for unknown indication
     Dosage: 5 MG, 1-0-1-0, TABLETTEN
     Route: 048
  10. ATORVASTATIN [Concomitant]
     Active Substance: ATORVASTATIN
     Indication: Product used for unknown indication
     Dosage: 60 MG, 0-0-0.5-0, TABLETTEN
     Route: 048
  11. RISEDRONIC ACID [Concomitant]
     Active Substance: RISEDRONIC ACID
     Indication: Product used for unknown indication
     Dosage: 35 MG, NACH SCHEMA (35 MG, ACCORDING TO THE SCHEME)
     Route: 048
  12. OMEPRAZOLE [Concomitant]
     Active Substance: OMEPRAZOLE
     Indication: Product used for unknown indication
     Dosage: 40 MG, 0-0-0-1, TABLETTEN
     Route: 048
  13. SULPIRIDE [Concomitant]
     Active Substance: SULPIRIDE
     Indication: Product used for unknown indication
     Dosage: 50 MG, 1-0-0-0, TABLETTEN
     Route: 048

REACTIONS (5)
  - Spinal pain [Unknown]
  - Fall [Unknown]
  - Fracture [Unknown]
  - Hypokalaemia [Unknown]
  - Hyponatraemia [Unknown]
